FAERS Safety Report 6544464-6 (Version None)
Quarter: 2010Q1

REPORT INFORMATION
  Report Type: 
  Country: None (occurrence: None)
  Receive Date: 20100121
  Receipt Date: 20100112
  Transmission Date: 20100710
  Serious: Yes (Life-Threatening)
  Sender: FDA-Public Use
  Company Number: BR-JNJFOC-20100104134

PATIENT
  Age: 56 Year
  Sex: Female

DRUGS (9)
  1. REMICADE [Suspect]
     Indication: PSORIATIC ARTHROPATHY
     Route: 042
  2. REMICADE [Suspect]
     Route: 042
  3. REMICADE [Suspect]
     Route: 042
  4. REMICADE [Suspect]
     Indication: PSORIASIS
     Route: 042
  5. REMICADE [Suspect]
     Route: 042
  6. REMICADE [Suspect]
     Route: 042
  7. DIOVAN [Concomitant]
     Route: 048
  8. ACTOS [Concomitant]
     Route: 048
  9. NOVOMIX [Concomitant]
     Route: 058

REACTIONS (7)
  - COMA SCALE ABNORMAL [None]
  - CYANOSIS [None]
  - DIABETES MELLITUS [None]
  - DYSPNOEA [None]
  - FLUSHING [None]
  - HAEMODYNAMIC INSTABILITY [None]
  - INFUSION RELATED REACTION [None]
